FAERS Safety Report 16436385 (Version 1)
Quarter: 2019Q2

REPORT INFORMATION
  Report Type: Spontaneous
  Country: US (occurrence: US)
  Receive Date: 20190614
  Receipt Date: 20190614
  Transmission Date: 20190711
  Serious: No
  Sender: FDA-Public Use
  Company Number: US-JNJFOC-20170109698

PATIENT
  Age: 85 Year
  Sex: Female
  Weight: 82.56 kg

DRUGS (3)
  1. TYLENOL 8 HR ARTHRITIS PAIN [Suspect]
     Active Substance: ACETAMINOPHEN
     Indication: MUSCULOSKELETAL PAIN
     Dosage: 2 TABLETS, EVERY 8 HOURS
     Route: 048
  2. NORVASC [Concomitant]
     Active Substance: AMLODIPINE BESYLATE
     Indication: HYPERTENSION
     Route: 065
  3. TYLENOL 8 HR ARTHRITIS PAIN [Suspect]
     Active Substance: ACETAMINOPHEN
     Indication: HEADACHE
     Dosage: 2 TABLETS, EVERY 8 HOURS
     Route: 048

REACTIONS (1)
  - Therapeutic product effect incomplete [Unknown]
